FAERS Safety Report 19549007 (Version 1)
Quarter: 2021Q3

REPORT INFORMATION
  Report Type: Spontaneous
  Country: US (occurrence: US)
  Receive Date: 20210715
  Receipt Date: 20210715
  Transmission Date: 20211014
  Serious: No
  Sender: FDA-Public Use
  Company Number: None

PATIENT
  Age: 70 Year
  Sex: Male
  Weight: 85.28 kg

DRUGS (2)
  1. PIPERACILLIN/TAZOBACTAM (PIPERACILLIN NA 4GM/TAZOBACTAM NA 0.5GM/100ML [Suspect]
     Active Substance: PIPERACILLIN SODIUM\TAZOBACTAM SODIUM
     Indication: SEPSIS
     Route: 042
     Dates: start: 20210218
  2. VANCOMYCIN (VANCOMYCIN HCL 1.25GM/VIAL INJ) [Suspect]
     Active Substance: VANCOMYCIN
     Indication: SEPSIS
     Route: 042
     Dates: start: 20210218, end: 20210301

REACTIONS (1)
  - Renal impairment [None]

NARRATIVE: CASE EVENT DATE: 20210301
